FAERS Safety Report 7336422-9 (Version None)
Quarter: 2011Q1

REPORT INFORMATION
  Report Type: 
  Country: None (occurrence: None)
  Receive Date: 20110307
  Receipt Date: 20110224
  Transmission Date: 20110831
  Serious: Yes (Other)
  Sender: FDA-Public Use
  Company Number: US-BAYER-2011-018901

PATIENT
  Sex: Female
  Weight: 53 kg

DRUGS (2)
  1. ASPIRIN [Suspect]
     Dosage: 2 DF, UNK
     Route: 048
  2. PENICILLIN G POTASSIUM [Concomitant]

REACTIONS (4)
  - HYPERHIDROSIS [None]
  - ANXIETY [None]
  - CHEST DISCOMFORT [None]
  - DIZZINESS [None]
